FAERS Safety Report 6345550-6 (Version None)
Quarter: 2009Q3

REPORT INFORMATION
  Report Type: 
  Country: None (occurrence: None)
  Receive Date: 20090909
  Receipt Date: 20090826
  Transmission Date: 20100115
  Serious: Yes (Other)
  Sender: FDA-Public Use
  Company Number: AU-PFIZER INC-2009260871

PATIENT

DRUGS (1)
  1. CELEBREX [Suspect]
     Indication: NECK INJURY

REACTIONS (1)
  - SYSTEMIC LUPUS ERYTHEMATOSUS [None]
